FAERS Safety Report 11889121 (Version 2)
Quarter: 2016Q1

REPORT INFORMATION
  Report Type: Spontaneous
  Country: US (occurrence: US)
  Receive Date: 20160105
  Receipt Date: 20160105
  Transmission Date: 20160526
  Serious: Yes (Other)
  Sender: FDA-Public Use
  Company Number: PHHY2015US171568

PATIENT
  Sex: Male

DRUGS (37)
  1. OMEPRAZOLE. [Suspect]
     Active Substance: OMEPRAZOLE
     Indication: PRODUCT USED FOR UNKNOWN INDICATION
     Dosage: 1 DF, QD
     Route: 065
  2. LITHIUM CARBONATE. [Suspect]
     Active Substance: LITHIUM CARBONATE
     Indication: PRODUCT USED FOR UNKNOWN INDICATION
     Dosage: 300 MG, UNK
     Route: 048
  3. BACLOFEN INTRATHECAL [Suspect]
     Active Substance: BACLOFEN
     Dosage: 98 UG, QD
     Route: 037
  4. BUPIVACAINE [Suspect]
     Active Substance: BUPIVACAINE
     Dosage: 3.3 MG, QD
     Route: 037
     Dates: start: 20150930
  5. SYNTHROID [Suspect]
     Active Substance: LEVOTHYROXINE SODIUM
     Indication: PRODUCT USED FOR UNKNOWN INDICATION
     Dosage: 75 MG, QD
     Route: 048
  6. ALLEGRA [Suspect]
     Active Substance: FEXOFENADINE HYDROCHLORIDE
     Indication: PRODUCT USED FOR UNKNOWN INDICATION
     Dosage: 180 MG, UNK
     Route: 048
  7. SEROQUEL [Suspect]
     Active Substance: QUETIAPINE FUMARATE
     Indication: PRODUCT USED FOR UNKNOWN INDICATION
     Dosage: 300 MG, ONE AT BEDTIME
     Route: 048
  8. RELISTOR [Suspect]
     Active Substance: METHYLNALTREXONE BROMIDE
     Indication: PRODUCT USED FOR UNKNOWN INDICATION
     Dosage: 12 MG, QOD
     Route: 058
  9. OXYCODONE [Suspect]
     Active Substance: OXYCODONE
     Indication: PRODUCT USED FOR UNKNOWN INDICATION
     Dosage: 30 MG, Q3H
     Route: 048
  10. CARBAMAZEPINE. [Suspect]
     Active Substance: CARBAMAZEPINE
     Indication: PRODUCT USED FOR UNKNOWN INDICATION
     Dosage: 1 DF,  AT BED TIME
     Route: 065
  11. ZOFRAN [Suspect]
     Active Substance: ONDANSETRON HYDROCHLORIDE
     Indication: PRODUCT USED FOR UNKNOWN INDICATION
     Dosage: 8 MG, Q6H AS NEEDED
     Route: 048
  12. CYCLOBENZAPRINE [Suspect]
     Active Substance: CYCLOBENZAPRINE
     Indication: PRODUCT USED FOR UNKNOWN INDICATION
     Dosage: 10 MG, BID
     Route: 048
  13. MORPHINE [Suspect]
     Active Substance: MORPHINE
     Dosage: 6.58 MG, QD
     Route: 037
  14. BUPIVACAINE [Suspect]
     Active Substance: BUPIVACAINE
     Dosage: 3.352 MG, QD
     Route: 037
  15. FLOMAX [Suspect]
     Active Substance: TAMSULOSIN HYDROCHLORIDE
     Indication: PRODUCT USED FOR UNKNOWN INDICATION
     Dosage: 1 DF, QD
     Route: 048
  16. CARAFATE [Suspect]
     Active Substance: SUCRALFATE
     Indication: PRODUCT USED FOR UNKNOWN INDICATION
     Dosage: 1 G, UNK
     Route: 048
  17. LAMICTAL [Suspect]
     Active Substance: LAMOTRIGINE
     Indication: PRODUCT USED FOR UNKNOWN INDICATION
     Dosage: 3 DF, QD
     Route: 048
  18. BACLOFEN INTRATHECAL [Suspect]
     Active Substance: BACLOFEN
     Dosage: BOLUS
     Route: 037
  19. MORPHINE [Suspect]
     Active Substance: MORPHINE
     Dosage: 6 MG, QD
     Route: 037
  20. BACLOFEN INTRATHECAL [Suspect]
     Active Substance: BACLOFEN
     Dosage: 134 UG, QD (400 MCG/ML)
     Dates: start: 20150930
  21. MORPHINE [Suspect]
     Active Substance: MORPHINE
     Indication: PAIN
     Dosage: 6.7 MG, QD
     Route: 037
  22. MORPHINE [Suspect]
     Active Substance: MORPHINE
     Dosage: 6.7 MG, QD
     Route: 037
     Dates: start: 20150930
  23. BUPIVACAINE [Suspect]
     Active Substance: BUPIVACAINE
     Dosage: 4.2 MG, QD
     Route: 037
  24. IMITREX [Suspect]
     Active Substance: SUMATRIPTAN SUCCINATE
     Indication: PRODUCT USED FOR UNKNOWN INDICATION
     Dosage: 6 MG, UNK
     Route: 058
  25. PRAZOSIN [Suspect]
     Active Substance: PRAZOSIN
     Indication: PRODUCT USED FOR UNKNOWN INDICATION
     Dosage: 2 MG, BID
     Route: 048
  26. KETAMINE [Suspect]
     Active Substance: KETAMINE
     Indication: PRODUCT USED FOR UNKNOWN INDICATION
     Dosage: 50 MG/ML, QD
     Route: 065
  27. BACLOFEN INTRATHECAL [Suspect]
     Active Substance: BACLOFEN
     Indication: PAIN
     Dosage: 91.47 UG, QD
     Route: 037
  28. BUPIVACAINE [Suspect]
     Active Substance: BUPIVACAINE
     Dosage: 4.3 MG, QD
     Route: 037
     Dates: start: 20150819
  29. VALIUM [Suspect]
     Active Substance: DIAZEPAM
     Indication: PRODUCT USED FOR UNKNOWN INDICATION
     Dosage: 10 MG, QD
     Route: 048
  30. CATAPRES [Suspect]
     Active Substance: CLONIDINE HYDROCHLORIDE
     Indication: PRODUCT USED FOR UNKNOWN INDICATION
     Dosage: 0.1 MG, QD
     Route: 048
  31. BACLOFEN INTRATHECAL [Suspect]
     Active Substance: BACLOFEN
     Dosage: 100 UG, QD
     Route: 037
     Dates: start: 20150819
  32. ATORVASTATIN [Suspect]
     Active Substance: ATORVASTATIN
     Indication: PRODUCT USED FOR UNKNOWN INDICATION
     Dosage: 40 MG, QD
     Route: 048
  33. MORPHINE [Suspect]
     Active Substance: MORPHINE
     Dosage: BOLUS
     Route: 037
  34. MORPHINE [Suspect]
     Active Substance: MORPHINE
     Dosage: 6.7 MG, QD
     Route: 037
     Dates: start: 20150819
  35. BUPIVACAINE [Suspect]
     Active Substance: BUPIVACAINE
     Indication: PAIN
     Dosage: 3 MG, QD
     Route: 037
  36. ZOLOFT [Suspect]
     Active Substance: SERTRALINE HYDROCHLORIDE
     Indication: PRODUCT USED FOR UNKNOWN INDICATION
     Dosage: 100 MG, QD
     Route: 048
  37. CELEBREX [Suspect]
     Active Substance: CELECOXIB
     Indication: PRODUCT USED FOR UNKNOWN INDICATION
     Dosage: 200 MG, BID
     Route: 048

REACTIONS (52)
  - Benign prostatic hyperplasia [Unknown]
  - Hypogonadism male [Unknown]
  - Seizure [Unknown]
  - Urinary incontinence [Unknown]
  - Movement disorder [Unknown]
  - Hyperkeratosis [Unknown]
  - Hypoacusis [Unknown]
  - Muscle spasms [Unknown]
  - Decreased appetite [Unknown]
  - Fatigue [Unknown]
  - Gastritis [Unknown]
  - Pain [Unknown]
  - Hypokalaemia [Unknown]
  - Performance status decreased [Unknown]
  - Abdominal pain [Unknown]
  - Discomfort [Unknown]
  - Eczema [Unknown]
  - Muscular weakness [Unknown]
  - Dyspnoea [Unknown]
  - Sleep disorder [Unknown]
  - Mobility decreased [Unknown]
  - Migraine [Unknown]
  - Joint crepitation [Unknown]
  - Constipation [Unknown]
  - Diverticulitis [Unknown]
  - Renal cyst [Unknown]
  - Urinary retention [Unknown]
  - Asthenia [Unknown]
  - Anal incontinence [Unknown]
  - Muscle spasticity [Unknown]
  - Sleep apnoea syndrome [Unknown]
  - Diplopia [Unknown]
  - Insomnia [Unknown]
  - Nausea [Unknown]
  - Gastrooesophageal reflux disease [Unknown]
  - Back pain [Unknown]
  - Skin lesion [Unknown]
  - Tachyphrenia [Unknown]
  - Intracranial aneurysm [Unknown]
  - Psoriasis [Unknown]
  - Polyp [Unknown]
  - Muscle tightness [Unknown]
  - Grimacing [Unknown]
  - No therapeutic response [Unknown]
  - Hypercholesterolaemia [Unknown]
  - Irritable bowel syndrome [Unknown]
  - Anxiety [Unknown]
  - Hypoaesthesia [Unknown]
  - Paraplegia [Unknown]
  - Myalgia [Unknown]
  - Tremor [Unknown]
  - Ischaemia [Unknown]
